FAERS Safety Report 7587634-0 (Version None)
Quarter: 2011Q3

REPORT INFORMATION
  Report Type: 
  Country: None (occurrence: None)
  Receive Date: 20110704
  Receipt Date: 20110620
  Transmission Date: 20111222
  Serious: Yes (Hospitalization, Other)
  Sender: FDA-Public Use
  Company Number: PHHY2011FR36714

PATIENT
  Sex: Male

DRUGS (2)
  1. ZOLEDRONIC ACID [Suspect]
     Indication: OSTEOPOROSIS
     Dosage: 5 MG, 1 DF, PER YEAR
     Route: 042
     Dates: start: 20100101
  2. LEXOMIL [Concomitant]
     Indication: ANXIETY
     Dosage: UNK UKN, UNK
     Route: 048
     Dates: start: 20070101

REACTIONS (1)
  - PROSTATE CANCER [None]
